FAERS Safety Report 24739036 (Version 2)
Quarter: 2025Q1

REPORT INFORMATION
  Report Type: Spontaneous
  Country: US (occurrence: US)
  Receive Date: 20241216
  Receipt Date: 20250101
  Transmission Date: 20250409
  Serious: Yes (Other)
  Sender: AMGEN
  Company Number: US-AMGEN-USASP2024242151

PATIENT
  Age: 63 Year
  Sex: Male

DRUGS (3)
  1. TAVNEOS [Suspect]
     Active Substance: AVACOPAN
     Indication: Renal disorder
     Dosage: 30 MILLIGRAM, BID
     Route: 065
     Dates: start: 20241206
  2. TAVNEOS [Suspect]
     Active Substance: AVACOPAN
     Indication: Off label use
  3. PREDNISONE [Concomitant]
     Active Substance: PREDNISONE
     Indication: Inflammation
     Route: 065

REACTIONS (12)
  - Haematochezia [Unknown]
  - Condition aggravated [Unknown]
  - Rectal haemorrhage [Unknown]
  - Haematoma [Recovering/Resolving]
  - Skin discolouration [Recovering/Resolving]
  - Muscular weakness [Unknown]
  - Dyspnoea [Unknown]
  - Palpitations [Unknown]
  - Off label use [Unknown]
  - Unevaluable event [Unknown]
  - Fatigue [Unknown]
  - Nausea [Unknown]

NARRATIVE: CASE EVENT DATE: 20241201
